FAERS Safety Report 9819808 (Version 1)
Quarter: 2014Q1

REPORT INFORMATION
  Report Type: Spontaneous
  Country: FR (occurrence: FR)
  Receive Date: 20140116
  Receipt Date: 20140116
  Transmission Date: 20141002
  Serious: Yes (Hospitalization)
  Sender: FDA-Public Use
  Company Number: FR-AMGEN-FRASP2014002498

PATIENT
  Age: 48 Year
  Sex: Female

DRUGS (14)
  1. PEGFILGRASTIM [Suspect]
     Indication: MALIGNANT LYMPHOID NEOPLASM
     Dosage: 6 MG, UNK
     Route: 058
     Dates: start: 20110628
  2. RITUXIMAB [Suspect]
     Indication: MALIGNANT LYMPHOID NEOPLASM
     Dosage: 600 MG, UNK
     Route: 042
     Dates: start: 20110627
  3. ARACYTINE [Suspect]
     Indication: MALIGNANT LYMPHOID NEOPLASM
     Dosage: 3200 MG, UNK
     Route: 042
     Dates: start: 20110624
  4. CISPLATIN [Suspect]
     Indication: MALIGNANT LYMPHOID NEOPLASM
     Dosage: 160 MG, UNK
     Route: 042
     Dates: start: 20110624
  5. DEXAMETHASONE [Suspect]
     Indication: MALIGNANT LYMPHOID NEOPLASM
     Dosage: 40 MG, UNK
     Route: 042
     Dates: start: 20110624
  6. ZOVIRAX                            /00587301/ [Concomitant]
     Indication: ANTIVIRAL PROPHYLAXIS
     Dosage: 1600 MG, UNK
     Route: 048
     Dates: start: 20110628
  7. ZOPHREN                            /00955302/ [Concomitant]
     Indication: NAUSEA
     Dosage: UNK
     Route: 048
     Dates: start: 20110628
  8. PRIMPERAN [Concomitant]
     Indication: NAUSEA
     Dosage: UNK
     Route: 048
     Dates: start: 20110628
  9. SPECIAFOLDINE [Concomitant]
     Dosage: UNK
     Dates: start: 20110628
  10. BACTRIM [Concomitant]
     Dosage: UNK
     Dates: start: 20110628
  11. MOPRAL                             /00661202/ [Concomitant]
     Dosage: UNK
     Dates: start: 20110628, end: 20110704
  12. TOPALGIC                           /00599202/ [Concomitant]
     Indication: PAIN PROPHYLAXIS
     Dosage: 200 MG, UNK
     Route: 048
     Dates: start: 20110628
  13. DAFALGAN [Concomitant]
     Indication: PROPHYLAXIS
     Dosage: UNK
     Route: 048
     Dates: start: 20110628
  14. EPOETIN ALFA [Concomitant]
     Dosage: UNK
     Route: 058
     Dates: start: 20110630

REACTIONS (1)
  - Febrile neutropenia [Recovered/Resolved]
